FAERS Safety Report 25480437 (Version 2)
Quarter: 2025Q3

REPORT INFORMATION
  Report Type: Spontaneous
  Country: US (occurrence: US)
  Receive Date: 20250625
  Receipt Date: 20250711
  Transmission Date: 20251020
  Serious: No
  Sender: PFIZER
  Company Number: US-PFIZER INC-202500127594

PATIENT
  Age: 17 Year
  Sex: Male

DRUGS (1)
  1. CIBINQO [Suspect]
     Active Substance: ABROCITINIB
     Indication: Dermatitis atopic
     Dosage: 100 MG, ONCE A DAY
     Route: 048
     Dates: start: 20250411

REACTIONS (2)
  - Aspartate aminotransferase increased [Unknown]
  - Hepatitis A antibody positive [Unknown]

NARRATIVE: CASE EVENT DATE: 20250505
